FAERS Safety Report 9931508 (Version 1)
Quarter: 2014Q1

REPORT INFORMATION
  Report Type: Spontaneous
  Country: NG (occurrence: None)
  Receive Date: 20140224
  Receipt Date: 20140224
  Transmission Date: 20141002
  Serious: Yes (Other)
  Sender: FDA-Public Use
  Company Number: SYM-2014-17558

PATIENT
  Age: 63 Year
  Sex: Male

DRUGS (3)
  1. FLUOROURACIL [Suspect]
     Indication: PANCREATIC CARCINOMA
  2. CISPLATIN [Suspect]
     Indication: PANCREATIC CARCINOMA
  3. DOXORUBICIN [Suspect]
     Indication: PANCREATIC CARCINOMA

REACTIONS (2)
  - Necrotising fasciitis [None]
  - Off label use [None]
